FAERS Safety Report 4831258-2 (Version None)
Quarter: 2005Q4

REPORT INFORMATION
  Report Type: 
  Country: None (occurrence: None)
  Receive Date: 20051116
  Receipt Date: 20051116
  Transmission Date: 20060501
  Serious: Yes (Hospitalization)
  Sender: FDA-Public Use
  Company Number: None

PATIENT
  Age: 55 Year
  Sex: Female
  Weight: 58.0604 kg

DRUGS (2)
  1. DOCETAXEL [Suspect]
     Indication: PANCREATIC CARCINOMA
     Dosage: 56.7MG IV WEEKLY X3
     Route: 042
     Dates: start: 20051103, end: 20051110
  2. RHUMABVEGF [Suspect]
     Indication: PANCREATIC CARCINOMA
     Dosage: 583.0 MG IV 4 DAYS X2
     Route: 042
     Dates: start: 20051103

REACTIONS (1)
  - FEBRILE NEUTROPENIA [None]
